FAERS Safety Report 9671978 (Version 1)
Quarter: 2013Q4

REPORT INFORMATION
  Report Type: Spontaneous
  Country: PL (occurrence: None)
  Receive Date: 20131104
  Receipt Date: 20131104
  Transmission Date: 20140711
  Serious: Yes (Other)
  Sender: FDA-Public Use
  Company Number: 2013276267

PATIENT
  Age: 49 Year
  Sex: Male

DRUGS (2)
  1. FRAGMIN [Suspect]
     Indication: CAROTID ARTERY THROMBOSIS
     Dosage: 1X/DAY
     Route: 058
  2. TEVAGRASTIM (FILGRASTIM) [Concomitant]

REACTIONS (6)
  - Hodgkin^s disease [None]
  - Pruritus generalised [None]
  - Visual acuity reduced [None]
  - Needle issue [None]
  - Vessel puncture site bruise [None]
  - Product quality issue [None]
